FAERS Safety Report 15706508 (Version 1)
Quarter: 2018Q4

REPORT INFORMATION
  Report Type: Spontaneous
  Country: US (occurrence: US)
  Receive Date: 20181210
  Receipt Date: 20181210
  Transmission Date: 20190205
  Serious: Yes (Hospitalization)
  Sender: FDA-Public Use
  Company Number: US-SA-2018SA334864

PATIENT
  Sex: Male

DRUGS (1)
  1. TAXOTERE [Suspect]
     Active Substance: DOCETAXEL
     Indication: PROSTATE CANCER
     Dosage: UNK UNK, UNK
     Route: 042

REACTIONS (6)
  - Pulse abnormal [Not Recovered/Not Resolved]
  - Hypotension [Recovering/Resolving]
  - Gait disturbance [Unknown]
  - Tremor [Unknown]
  - Vertigo [Recovered/Resolved]
  - Fall [Unknown]
